FAERS Safety Report 4901786-X (Version None)
Quarter: 2006Q1

REPORT INFORMATION
  Report Type: 
  Country: None (occurrence: None)
  Receive Date: 20060202
  Receipt Date: 20060202
  Transmission Date: 20060701
  Serious: Yes (Hospitalization)
  Sender: FDA-Public Use
  Company Number: None

PATIENT
  Age: 51 Year
  Sex: Male
  Weight: 90.8 kg

DRUGS (1)
  1. LOVENOX [Suspect]
     Dosage: 40MG QD SQ
     Route: 058
     Dates: start: 20051111, end: 20051113

REACTIONS (4)
  - HYPOVOLAEMIA [None]
  - NEPHRECTOMY [None]
  - POST PROCEDURAL COMPLICATION [None]
  - RETROPERITONEAL HAEMATOMA [None]
